FAERS Safety Report 16935208 (Version 1)
Quarter: 2019Q4

REPORT INFORMATION
  Report Type: Spontaneous
  Country: US (occurrence: US)
  Receive Date: 20191018
  Receipt Date: 20191018
  Transmission Date: 20200122
  Serious: No
  Sender: FDA-Public Use
  Company Number: US-TEVA-2019-US-1123309

PATIENT
  Sex: Male

DRUGS (2)
  1. CLONAZEPAM TEVA [Suspect]
     Active Substance: CLONAZEPAM
     Route: 065
     Dates: start: 201909
  2. CLONAZEPAM TEVA [Suspect]
     Active Substance: CLONAZEPAM
     Indication: ANXIETY
     Dosage: SINCE MANY YEARS
     Route: 065

REACTIONS (1)
  - Drug ineffective [Unknown]

NARRATIVE: CASE EVENT DATE: 2019
